FAERS Safety Report 5027064-9 (Version None)
Quarter: 2006Q2

REPORT INFORMATION
  Report Type: 
  Country: None (occurrence: None)
  Receive Date: 20060609
  Receipt Date: 20060601
  Transmission Date: 20061013
  Serious: Yes (Other)
  Sender: FDA-Public Use
  Company Number: 2006043070

PATIENT
  Age: 80 Year
  Sex: Female

DRUGS (1)
  1. LIPITOR [Suspect]
     Indication: BLOOD CHOLESTEROL INCREASED

REACTIONS (10)
  - ARTHRITIS [None]
  - BLINDNESS UNILATERAL [None]
  - CATARACT [None]
  - CATARACT OPERATION COMPLICATION [None]
  - CONDITION AGGRAVATED [None]
  - ECONOMIC PROBLEM [None]
  - LARYNGEAL DISORDER [None]
  - MACULAR DEGENERATION [None]
  - PAIN [None]
  - WRONG TECHNIQUE IN DRUG USAGE PROCESS [None]
